FAERS Safety Report 4741481-3 (Version None)
Quarter: 2005Q3

REPORT INFORMATION
  Report Type: 
  Country: None (occurrence: None)
  Receive Date: 20050808
  Receipt Date: 20050725
  Transmission Date: 20060218
  Serious: Yes (Hospitalization)
  Sender: FDA-Public Use
  Company Number: HQWYE445525JUL05

PATIENT
  Age: 50 Year
  Sex: Female

DRUGS (1)
  1. NORGESTREL AND ETHINYL ESTRADIOL [Suspect]
     Indication: OVARIAN FAILURE
     Dosage: ORAL
     Route: 048
     Dates: start: 20020101, end: 20050125

REACTIONS (5)
  - ARTERIAL OCCLUSIVE DISEASE [None]
  - MESENTERIC ARTERY STENOSIS [None]
  - MESENTERIC VEIN THROMBOSIS [None]
  - PORTAL VEIN THROMBOSIS [None]
  - SPLENIC VEIN THROMBOSIS [None]
